FAERS Safety Report 21136718 (Version 1)
Quarter: 2022Q3

REPORT INFORMATION
  Report Type: Spontaneous
  Country: MX (occurrence: None)
  Receive Date: 20220727
  Receipt Date: 20220727
  Transmission Date: 20221026
  Serious: Yes (Hospitalization)
  Sender: FDA-Public Use
  Company Number: MX-ROCHE-3148536

PATIENT
  Sex: Male

DRUGS (1)
  1. EMICIZUMAB [Suspect]
     Active Substance: EMICIZUMAB
     Indication: Product used for unknown indication
     Dosage: DOSE AND FREQUENCY WERE NOT REPORTED
     Route: 065
     Dates: start: 2021, end: 202203

REACTIONS (3)
  - Arthritis bacterial [Not Recovered/Not Resolved]
  - Peripheral swelling [Not Recovered/Not Resolved]
  - Joint injury [Not Recovered/Not Resolved]
